FAERS Safety Report 5595843-5 (Version None)
Quarter: 2008Q1

REPORT INFORMATION
  Report Type: 
  Country: None (occurrence: None)
  Receive Date: 20080118
  Receipt Date: 20080108
  Transmission Date: 20080703
  Serious: Yes (Other)
  Sender: FDA-Public Use
  Company Number: PL-JNJFOC-20080104351

PATIENT
  Age: 68 Year
  Sex: Male

DRUGS (2)
  1. ASPIRIN [Suspect]
     Indication: ANTIPLATELET THERAPY
  2. CLOPIDOGREL [Suspect]
     Indication: ANTIPLATELET THERAPY

REACTIONS (2)
  - EPISTAXIS [None]
  - UPPER GASTROINTESTINAL HAEMORRHAGE [None]
